FAERS Safety Report 9399887 (Version 2)
Quarter: 2013Q3

REPORT INFORMATION
  Report Type: Spontaneous
  Country: GB (occurrence: None)
  Receive Date: 20130710
  Receipt Date: 20130717
  Transmission Date: 20140515
  Serious: Yes (Other)
  Sender: FDA-Public Use
  Company Number: AUR-APL-2013-05692

PATIENT
  Age: 67 Year
  Sex: Male
  Weight: 79.28 kg

DRUGS (2)
  1. SIMVASTATIN (SIMVASTATIN) [Suspect]
     Indication: BLOOD CHOLESTEROL INCREASED
  2. LISINOPRIL (LISINOPRIL) [Concomitant]

REACTIONS (4)
  - Abnormal dreams [None]
  - Sleep disorder [None]
  - Middle insomnia [None]
  - Abnormal dreams [None]
